FAERS Safety Report 15450349 (Version 1)
Quarter: 2018Q3

REPORT INFORMATION
  Report Type: Spontaneous
  Country: US (occurrence: US)
  Receive Date: 20180926
  Receipt Date: 20180926
  Transmission Date: 20181010
  Serious: Yes (Hospitalization)
  Sender: FDA-Public Use
  Company Number: None

PATIENT
  Age: 66 Year
  Weight: 40.82 kg

DRUGS (3)
  1. BENLYSTA [Concomitant]
     Active Substance: BELIMUMAB
  2. QUDEXY XR [Concomitant]
     Active Substance: TOPIRAMATE
  3. AIMOVIG [Suspect]
     Active Substance: ERENUMAB-AOOE
     Indication: MIGRAINE
     Route: 058
     Dates: start: 20150814, end: 20180917

REACTIONS (1)
  - Blood pressure increased [None]

NARRATIVE: CASE EVENT DATE: 20180517
